FAERS Safety Report 25611957 (Version 2)
Quarter: 2025Q4

REPORT INFORMATION
  Report Type: Spontaneous
  Country: US (occurrence: US)
  Receive Date: 20250728
  Receipt Date: 20251007
  Transmission Date: 20260118
  Serious: No
  Sender: ROCHE
  Company Number: US-ROCHE-10000341994

PATIENT
  Sex: Female

DRUGS (4)
  1. RITUXAN [Suspect]
     Active Substance: RITUXIMAB
     Indication: Rheumatoid arthritis
     Route: 042
     Dates: start: 202410
  2. DIPHENHYDRAMINE SDV (1ML/VL) [Concomitant]
  3. ACETAMINOPHEN XS [Concomitant]
  4. METHYLPRED SOD SUCC SDV [Concomitant]

REACTIONS (3)
  - Drug intolerance [Unknown]
  - Nausea [Recovered/Resolved]
  - Headache [Recovered/Resolved]
